FAERS Safety Report 13674358 (Version 1)
Quarter: 2017Q2

REPORT INFORMATION
  Report Type: Spontaneous
  Country: AU (occurrence: AU)
  Receive Date: 20170621
  Receipt Date: 20170621
  Transmission Date: 20170830
  Serious: Yes (Other)
  Sender: FDA-Public Use
  Company Number: AU-ASTRAZENECA-2017SE63052

PATIENT
  Age: 58 Year
  Sex: Male

DRUGS (1)
  1. IRESSA [Suspect]
     Active Substance: GEFITINIB
     Route: 048
     Dates: start: 201611

REACTIONS (12)
  - Metastases to meninges [Unknown]
  - VIth nerve paralysis [Unknown]
  - Diarrhoea [Unknown]
  - Micturition urgency [Unknown]
  - Diplopia [Unknown]
  - Headache [Unknown]
  - Urinary incontinence [Unknown]
  - Nausea [Unknown]
  - Fatigue [Unknown]
  - Metastases to central nervous system [Unknown]
  - Hydronephrosis [Unknown]
  - Rash [Unknown]

NARRATIVE: CASE EVENT DATE: 201702
